FAERS Safety Report 7760915-3 (Version None)
Quarter: 2011Q3

REPORT INFORMATION
  Report Type: 
  Country: None (occurrence: None)
  Receive Date: 20110919
  Receipt Date: 20110908
  Transmission Date: 20111222
  Serious: Yes (Other)
  Sender: FDA-Public Use
  Company Number: CH-GENENTECH-324220

PATIENT
  Sex: Male

DRUGS (2)
  1. CLADRIBINE [Concomitant]
     Indication: PRODUCT USED FOR UNKNOWN INDICATION
     Dosage: UNK
  2. MABTHERA [Suspect]
     Indication: OSTEOCHONDROSIS
     Dosage: UNK
     Route: 042
     Dates: start: 20100101

REACTIONS (2)
  - BONE MARROW FAILURE [None]
  - MOUTH ULCERATION [None]
